FAERS Safety Report 5047905-9 (Version None)
Quarter: 2006Q3

REPORT INFORMATION
  Report Type: 
  Country: None (occurrence: None)
  Receive Date: 20060711
  Receipt Date: 20060126
  Transmission Date: 20061208
  Serious: Yes (Disabling)
  Sender: FDA-Public Use
  Company Number: BE-GLAXOSMITHKLINE-B0408239A

PATIENT
  Age: 22 Year
  Sex: Female
  Weight: 52 kg

DRUGS (1)
  1. SEROXAT [Suspect]
     Indication: DEPRESSION
     Dosage: 20MG PER DAY
     Route: 048
     Dates: start: 20051206

REACTIONS (10)
  - ABDOMINAL PAIN [None]
  - ANOREXIA [None]
  - DISTURBANCE IN ATTENTION [None]
  - HEADACHE [None]
  - LEARNING DISORDER [None]
  - MIDDLE INSOMNIA [None]
  - NAUSEA [None]
  - PALLOR [None]
  - SOMNOLENCE [None]
  - TREMOR [None]
